FAERS Safety Report 6263954-7 (Version None)
Quarter: 2009Q3

REPORT INFORMATION
  Report Type: 
  Country: None (occurrence: None)
  Receive Date: 20090710
  Receipt Date: 20090629
  Transmission Date: 20100115
  Serious: Yes (Death, Other)
  Sender: FDA-Public Use
  Company Number: TR-WYE-H10022209

PATIENT
  Age: 67 Year
  Sex: Male

DRUGS (5)
  1. AMIODARONE HCL [Suspect]
     Indication: CORONARY ARTERY BYPASS
  2. ENDOL [Suspect]
     Indication: CORONARY ARTERY BYPASS
  3. COVERSYL [Suspect]
     Indication: CORONARY ARTERY BYPASS
  4. ACETYLSALICYLIC ACID SRT [Suspect]
     Indication: CORONARY ARTERY BYPASS
  5. LASIX [Suspect]
     Indication: CORONARY ARTERY BYPASS

REACTIONS (3)
  - PANCYTOPENIA [None]
  - SEPTIC SHOCK [None]
  - TOXIC EPIDERMAL NECROLYSIS [None]
